FAERS Safety Report 7746379-4 (Version None)
Quarter: 2011Q3

REPORT INFORMATION
  Report Type: 
  Country: None (occurrence: None)
  Receive Date: 20110913
  Receipt Date: 20110913
  Transmission Date: 20111222
  Serious: Yes (Other)
  Sender: FDA-Public Use
  Company Number: None

PATIENT
  Age: 3 Year
  Weight: 16.329 kg

DRUGS (1)
  1. SINGULAIR [Suspect]
     Indication: RHINITIS ALLERGIC
     Dosage: 1 PACKET
     Route: 048
     Dates: start: 20091001, end: 20110912

REACTIONS (9)
  - CRYING [None]
  - DECREASED APPETITE [None]
  - SCREAMING [None]
  - EMOTIONAL DISORDER [None]
  - ABDOMINAL PAIN UPPER [None]
  - MENTAL DISORDER [None]
  - ABNORMAL BEHAVIOUR [None]
  - ANGER [None]
  - AGGRESSION [None]
